FAERS Safety Report 9462894 (Version 1)
Quarter: 2013Q3

REPORT INFORMATION
  Report Type: Spontaneous
  Country: IN (occurrence: None)
  Receive Date: 20130814
  Receipt Date: 20130814
  Transmission Date: 20140515
  Serious: Yes (Life-Threatening)
  Sender: FDA-Public Use
  Company Number: 2013P1017363

PATIENT
  Age: 25 Year
  Sex: Female

DRUGS (4)
  1. LIDOCAINE / EPINEPHRINE [Suspect]
  2. GLYCOPYROLATE [Concomitant]
  3. PENTZOCIN [Concomitant]
  4. PROMETHAZINE [Concomitant]

REACTIONS (10)
  - Toxicity to various agents [None]
  - Restlessness [None]
  - Tachycardia [None]
  - Blood pressure increased [None]
  - Headache [None]
  - Chest pain [None]
  - Electrocardiogram ST segment depression [None]
  - Electrocardiogram T wave inversion [None]
  - Tremor [None]
  - Palpitations [None]
